FAERS Safety Report 22344084 (Version 2)
Quarter: 2023Q2

REPORT INFORMATION
  Report Type: Spontaneous
  Country: US (occurrence: US)
  Receive Date: 20230519
  Receipt Date: 20230519
  Transmission Date: 20230721
  Serious: Yes (Hospitalization)
  Sender: FDA-Public Use
  Company Number: US-RECORDATI RARE DISEASE INC.-2023002809

PATIENT
  Sex: Male

DRUGS (6)
  1. PANHEMATIN [Suspect]
     Active Substance: HEMIN
     Indication: Porphyria acute
     Route: 065
  2. PANHEMATIN [Suspect]
     Active Substance: HEMIN
     Dosage: UNK
     Dates: start: 20230424, end: 20230424
  3. IRON [Concomitant]
     Active Substance: IRON
     Indication: Haematocrit decreased
     Dosage: UNK
     Route: 065
     Dates: start: 20230424, end: 20230424
  4. IRON [Concomitant]
     Active Substance: IRON
     Indication: Haemoglobin decreased
  5. BENADRYL [Concomitant]
     Active Substance: DIPHENHYDRAMINE HYDROCHLORIDE
     Indication: Product used for unknown indication
     Route: 065
  6. PREDNISONE [Suspect]
     Active Substance: PREDNISONE
     Indication: Product used for unknown indication
     Route: 065

REACTIONS (3)
  - Urticaria [Not Recovered/Not Resolved]
  - Blister [Not Recovered/Not Resolved]
  - Off label use [Unknown]
